FAERS Safety Report 9518602 (Version 1)
Quarter: 2013Q1

REPORT INFORMATION
  Report Type: Spontaneous
  Country: US (occurrence: None)
  Receive Date: 20130305
  Receipt Date: 20130305
  Transmission Date: 20140127
  Serious: Yes (Other)
  Sender: FDA-Public Use
  Company Number: 163-21880-12080405

PATIENT
  Age: 57 Year
  Sex: Female

DRUGS (8)
  1. REVLIMID [Suspect]
     Indication: PLASMA CELL MYELOMA
     Dosage: 25 MG, 1 IN 1 D, PO
     Route: 048
     Dates: start: 20110803
  2. GABAPENTIN (GABAPENTIN) [Concomitant]
  3. OXYCODONE (OXYCODONE) [Concomitant]
  4. BENADRYL (DIPHENHYDRAMINE) [Concomitant]
  5. ASPIRIN (ACETYLSALICYLIC ACID) [Concomitant]
  6. PRILOSEC [Concomitant]
  7. POTASSIUM GLUCONATE (POTASSIUM GLUCONATE) [Concomitant]
  8. VITAMINS [Concomitant]

REACTIONS (2)
  - Contusion [None]
  - Adverse reaction [None]
